FAERS Safety Report 20912722 (Version 1)
Quarter: 2022Q2

REPORT INFORMATION
  Report Type: Spontaneous
  Country: FR (occurrence: FR)
  Receive Date: 20220603
  Receipt Date: 20220603
  Transmission Date: 20220720
  Serious: Yes (Other)
  Sender: FDA-Public Use
  Company Number: FR-PURDUE PHARMA-USA-2022-0294190

PATIENT
  Age: 29 Year
  Sex: Female

DRUGS (2)
  1. LIDOCAINE [Suspect]
     Active Substance: LIDOCAINE
     Indication: Local anaesthesia
     Dosage: UNKNOWN
     Route: 065
  2. NOREPINEPHRINE [Suspect]
     Active Substance: NOREPINEPHRINE
     Indication: Local anaesthesia
     Dosage: UNKNOWN
     Route: 065

REACTIONS (2)
  - Embolia cutis medicamentosa [Unknown]
  - Exposure during pregnancy [Unknown]
